FAERS Safety Report 8105644-1 (Version None)
Quarter: 2012Q1

REPORT INFORMATION
  Report Type: 
  Country: None (occurrence: None)
  Receive Date: 20120201
  Receipt Date: 20120123
  Transmission Date: 20120608
  Serious: Yes (Other)
  Sender: FDA-Public Use
  Company Number: CHPA2012US001869

PATIENT
  Age: 79 Year
  Sex: Male
  Weight: 52.154 kg

DRUGS (1)
  1. EXCEDRIN EXTRA STRENGTH TABLETS [Suspect]
     Indication: HEADACHE
     Dosage: 10-12 DF, QD
     Route: 048

REACTIONS (6)
  - DRUG DEPENDENCE [None]
  - DEMENTIA ALZHEIMER'S TYPE [None]
  - PROSTATE INFECTION [None]
  - KIDNEY INFECTION [None]
  - OVERDOSE [None]
  - INCORRECT DRUG ADMINISTRATION DURATION [None]
